FAERS Safety Report 8987451 (Version 2)
Quarter: 2013Q1

REPORT INFORMATION
  Report Type: Spontaneous
  Country: US (occurrence: US)
  Receive Date: 20121227
  Receipt Date: 20130227
  Transmission Date: 20140127
  Serious: No
  Sender: FDA-Public Use
  Company Number: US-PFIZER INC-2012326663

PATIENT
  Age: 77 Year
  Sex: Female
  Weight: 90.7 kg

DRUGS (8)
  1. PHOSPHOLINE IODIDE [Suspect]
     Indication: GLAUCOMA
     Dosage: UNK, DAILY
     Dates: start: 201211
  2. PHOSPHOLINE IODIDE [Suspect]
     Indication: INTRAOCULAR PRESSURE TEST ABNORMAL
     Dosage: 1/10 %, UNK
  3. PHOSPHOLINE IODIDE [Suspect]
     Dosage: 1/9 %, UNK
  4. TIMOLOL MALEATE [Suspect]
     Indication: GLAUCOMA
     Dosage: UNK, DAILY
     Dates: start: 201210
  5. ALPHAGAN P [Suspect]
     Indication: GLAUCOMA
     Dosage: UNK, DAILY
  6. PREDNISOLONE ACETATE [Suspect]
     Indication: EYE IRRITATION
     Dosage: UNK, DAILY
     Dates: start: 201206, end: 2012
  7. PREDNISOLONE ACETATE [Suspect]
     Indication: EYE INFLAMMATION
  8. FOSAMAX [Concomitant]
     Indication: OSTEOPOROSIS
     Dosage: UNK

REACTIONS (3)
  - Drug ineffective [Unknown]
  - Eye infection [Unknown]
  - Headache [Recovered/Resolved]
